FAERS Safety Report 8623104-6 (Version None)
Quarter: 2012Q3

REPORT INFORMATION
  Report Type: 
  Country: None (occurrence: None)
  Receive Date: 20120827
  Receipt Date: 20120820
  Transmission Date: 20120928
  Serious: Yes (Death, Other)
  Sender: FDA-Public Use
  Company Number: SE-SANOFI-AVENTIS-2012SA060085

PATIENT
  Age: 73 Year
  Sex: Male
  Weight: 86 kg

DRUGS (9)
  1. INVESTIGATIONAL DRUG [Suspect]
     Indication: NON-SMALL CELL LUNG CANCER STAGE IV
     Dosage: EVERY 3 WEEKS, DAY 1 OF A 21 DAY CYCLE
     Route: 042
     Dates: start: 20120628, end: 20120628
  2. TIOTROPIUM BROMIDE [Concomitant]
     Indication: CHRONIC OBSTRUCTIVE PULMONARY DISEASE
     Dates: start: 20120105
  3. BENZYDAMINE [Concomitant]
     Dates: start: 20120709
  4. BUDESONIDE [Concomitant]
     Indication: CHRONIC OBSTRUCTIVE PULMONARY DISEASE
     Dates: start: 20120105
  5. ONDANSETRON [Concomitant]
     Indication: PREMEDICATION
  6. DOCETAXEL [Suspect]
     Indication: NON-SMALL CELL LUNG CANCER STAGE IV
     Dosage: EVERY 3 WEEKS, DAY 1 OF A 21 DAY CYCLE
     Route: 041
     Dates: start: 20120628, end: 20120628
  7. ACETAMINOPHEN [Concomitant]
     Indication: PAIN
     Dates: start: 20120314
  8. BETAMETHASONE [Concomitant]
     Indication: PREMEDICATION
  9. EZETIMIBE [Concomitant]
     Dates: start: 20111027

REACTIONS (2)
  - SUDDEN DEATH [None]
  - NEUTROPENIA [None]
